FAERS Safety Report 6371465-3 (Version None)
Quarter: 2009Q3

REPORT INFORMATION
  Report Type: 
  Country: None (occurrence: None)
  Receive Date: 20090923
  Receipt Date: 20070724
  Transmission Date: 20100115
  Serious: No
  Sender: FDA-Public Use
  Company Number: US-ASTRAZENECA-2007UW12052

PATIENT
  Age: 17560 Day
  Sex: Female

DRUGS (6)
  1. SEROQUEL [Suspect]
     Indication: DEPRESSION
     Dosage: 25MG TO 200MG
     Route: 048
     Dates: start: 20030314
  2. SEROQUEL [Suspect]
     Route: 048
     Dates: start: 20041103, end: 20060501
  3. EFFEXOR [Concomitant]
     Dosage: 37.5 TO 150 MG
     Route: 065
  4. VYTORIN [Concomitant]
     Dosage: 10 TO 80 MG
     Route: 065
  5. METFORMIN HCL [Concomitant]
     Route: 065
  6. NEXIUM [Concomitant]
     Route: 065

REACTIONS (1)
  - TYPE 2 DIABETES MELLITUS [None]
